FAERS Safety Report 5105600-1 (Version None)
Quarter: 2006Q3

REPORT INFORMATION
  Report Type: 
  Country: None (occurrence: None)
  Receive Date: 20060915
  Receipt Date: 20060829
  Transmission Date: 20061208
  Serious: Yes (Disabling, Other)
  Sender: FDA-Public Use
  Company Number: 2006UW17295

PATIENT
  Sex: Female

DRUGS (6)
  1. FASLODEX [Suspect]
     Indication: BREAST CANCER
     Route: 030
     Dates: start: 20060712, end: 20060901
  2. METOPROLOL [Concomitant]
     Route: 048
     Dates: start: 20051001
  3. CLODRONATE [Concomitant]
     Route: 048
     Dates: start: 20051001
  4. TELMISARTAN [Concomitant]
     Route: 048
     Dates: start: 20051001
  5. LEVOTHYROXINE SODIUM [Concomitant]
     Route: 048
     Dates: start: 20051001
  6. CIMETIDINE [Concomitant]
     Route: 048
     Dates: start: 20060725

REACTIONS (4)
  - BONE LESION [None]
  - BONE PAIN [None]
  - DISEASE PROGRESSION [None]
  - PAIN [None]
